FAERS Safety Report 5621082-5 (Version None)
Quarter: 2008Q1

REPORT INFORMATION
  Report Type: 
  Country: None (occurrence: None)
  Receive Date: 20080114
  Receipt Date: 20061228
  Transmission Date: 20080703
  Serious: Yes (Other)
  Sender: FDA-Public Use
  Company Number: A03200607719

PATIENT
  Age: 68 Year
  Sex: Male

DRUGS (2)
  1. PLAVIX [Suspect]
     Dosage: 75 MG QD, ORAL
     Route: 048
     Dates: start: 20060801, end: 20061201
  2. COUMADIN [Suspect]
     Indication: ATRIAL FIBRILLATION
     Dosage: 5 MG HS ALTERNATING EVERYOTHER NIGHT WITH 2.5 MG HS , ORAL
     Route: 048
     Dates: start: 20061101

REACTIONS (1)
  - EYE HAEMORRHAGE [None]
